FAERS Safety Report 7725342-3 (Version None)
Quarter: 2011Q3

REPORT INFORMATION
  Report Type: 
  Country: None (occurrence: None)
  Receive Date: 20110829
  Receipt Date: 20110815
  Transmission Date: 20111222
  Serious: Yes (Hospitalization, Other)
  Sender: FDA-Public Use
  Company Number: 2011MA007104

PATIENT
  Age: 23 Year
  Sex: Male

DRUGS (6)
  1. DIAZEPAM [Concomitant]
  2. CHLORPROMAZINE [Concomitant]
  3. OLANZAPINE [Concomitant]
  4. TRAMADOL HYDROCHLORIDE [Suspect]
     Indication: BACK PAIN
     Dosage: 100 MG;QID
     Dates: start: 20110301, end: 20110520
  5. METHADONE HCL [Concomitant]
  6. HALOPERIDOL [Concomitant]

REACTIONS (2)
  - PSYCHOTIC DISORDER [None]
  - HALLUCINATIONS, MIXED [None]
